FAERS Safety Report 7902352-4 (Version None)
Quarter: 2011Q4

REPORT INFORMATION
  Report Type: 
  Country: None (occurrence: None)
  Receive Date: 20111108
  Receipt Date: 20111103
  Transmission Date: 20120403
  Serious: Yes (Other)
  Sender: FDA-Public Use
  Company Number: HR-ABBOTT-11P-216-0860319-00

PATIENT
  Sex: Male

DRUGS (7)
  1. FOLIC ACID [Concomitant]
     Indication: PRODUCT USED FOR UNKNOWN INDICATION
     Dosage: 1.25MG, 5MG TBL: 1/4 PER DAY
     Route: 048
     Dates: start: 20100223, end: 20110412
  2. LUPOCEL [Concomitant]
     Indication: PRODUCT USED FOR UNKNOWN INDICATION
     Dosage: 1-2 TABLETS PER DAY, PER OS
     Dates: start: 20110829
  3. LUBOR [Concomitant]
     Indication: PRODUCT USED FOR UNKNOWN INDICATION
     Route: 048
     Dates: start: 20100223, end: 20110829
  4. METHOTREXATE [Concomitant]
     Indication: PRODUCT USED FOR UNKNOWN INDICATION
     Dosage: 10MG, 2.5MG, 4 TBL (1X WEEKLY)
     Route: 048
     Dates: start: 20100223, end: 20101129
  5. METHOTREXATE [Concomitant]
     Dosage: 7.5MG, 2.5MG, 3 TBL (1X WEEKLY)
     Route: 048
     Dates: start: 20101129, end: 20110412
  6. HUMIRA [Suspect]
     Indication: PSORIASIS
  7. HUMIRA [Suspect]
     Indication: PSORIATIC ARTHROPATHY
     Route: 058
     Dates: start: 20091101, end: 20110801

REACTIONS (5)
  - HYPERTRANSAMINASAEMIA [None]
  - TRANSAMINASES INCREASED [None]
  - OSTEOARTHRITIS [None]
  - PAIN [None]
  - HEPATIC ENZYME INCREASED [None]
